FAERS Safety Report 9005861 (Version 1)
Quarter: 2013Q1

REPORT INFORMATION
  Report Type: Spontaneous
  Country: NL (occurrence: NL)
  Receive Date: 20130109
  Receipt Date: 20130109
  Transmission Date: 20140127
  Serious: Yes (Hospitalization)
  Sender: FDA-Public Use
  Company Number: PHHY2013NL001449

PATIENT
  Sex: Male

DRUGS (3)
  1. ZOMETA [Suspect]
     Indication: PROSTATE CANCER METASTATIC
     Dosage: 4 MG, (4 MG/100 ML ONCE PER 28 DAYS)
     Route: 042
     Dates: start: 20080229
  2. ZOMETA [Suspect]
     Dosage: 4 MG, (4 MG/100 ML ONCE PER 28 DAYS)
     Route: 042
     Dates: start: 20121209
  3. ZOMETA [Suspect]
     Dosage: 4 MG, (4 MG/100 ML ONCE PER 28 DAYS)
     Route: 042
     Dates: start: 20130103

REACTIONS (1)
  - Heart rate increased [Recovering/Resolving]
